FAERS Safety Report 10676066 (Version 1)
Quarter: 2014Q4

REPORT INFORMATION
  Report Type: Report from Study
  Country: US (occurrence: US)
  Receive Date: 20141225
  Receipt Date: 20141225
  Transmission Date: 20150529
  Serious: No
  Sender: FDA-Public Use
  Company Number: US-AMGEN INC.-USASL2014099729

PATIENT
  Age: 49 Year
  Sex: Female
  Weight: 28.57 kg

DRUGS (1)
  1. ENBREL [Suspect]
     Active Substance: ETANERCEPT
     Indication: RHEUMATOID ARTHRITIS
     Dosage: 50 MG, QWK
     Route: 058
     Dates: start: 201406, end: 201411

REACTIONS (1)
  - Cough [Unknown]

NARRATIVE: CASE EVENT DATE: 201412
